FAERS Safety Report 8589014-8 (Version None)
Quarter: 2012Q3

REPORT INFORMATION
  Report Type: 
  Country: None (occurrence: None)
  Receive Date: 20120813
  Receipt Date: 20120529
  Transmission Date: 20120928
  Serious: Yes (Other)
  Sender: FDA-Public Use
  Company Number: JP-009507513-2012SP029686

PATIENT

DRUGS (9)
  1. REBETOL [Suspect]
     Indication: HEPATITIS C
     Dosage: 800 MG, QD
     Route: 048
     Dates: start: 20120327, end: 20120423
  2. REBETOL [Suspect]
     Route: 048
     Dates: start: 20120522
  3. REBETOL [Suspect]
     Route: 048
     Dates: end: 20120521
  4. REBETOL [Suspect]
     Dosage: 600 MG, QD
     Route: 048
     Dates: start: 20120424
  5. ANTIVIRAL (UNSPECIFIED) [Suspect]
     Indication: HEPATITIS C
     Dosage: 2250 MG, QD
     Route: 048
     Dates: start: 20120327
  6. PEG-INTRON [Suspect]
     Indication: HEPATITIS C
     Dosage: 1.5MCG/KG/WEEK
     Route: 058
     Dates: start: 20120327
  7. TELAVIC [Suspect]
     Indication: HEPATITIS C
     Route: 048
     Dates: start: 20120327, end: 20120521
  8. TELAVIC [Suspect]
     Route: 048
     Dates: start: 20120522, end: 20120611
  9. TELAVIC [Suspect]
     Route: 048
     Dates: start: 20120612, end: 20120618

REACTIONS (2)
  - ANAEMIA [None]
  - HYPERURICAEMIA [None]
